FAERS Safety Report 8392116-2 (Version None)
Quarter: 2012Q2

REPORT INFORMATION
  Report Type: 
  Country: None (occurrence: None)
  Receive Date: 20120529
  Receipt Date: 20120522
  Transmission Date: 20120825
  Serious: Yes (Hospitalization)
  Sender: FDA-Public Use
  Company Number: JP-ROCHE-1072159

PATIENT
  Sex: Male
  Weight: 60 kg

DRUGS (5)
  1. OXALIPLATIN [Concomitant]
     Indication: COLON CANCER METASTATIC
     Dosage: DOSAGE IS UNCERTAIN.
     Route: 041
     Dates: start: 20110713, end: 20110805
  2. OXALIPLATIN [Concomitant]
     Route: 041
     Dates: start: 20110826, end: 20110826
  3. XELODA [Suspect]
     Dosage: 2 WEEKS ADMINISTRATION FOLLOWED BY 1 WEEK REST
     Route: 048
     Dates: start: 20110826, end: 20120217
  4. XELODA [Suspect]
     Indication: COLON CANCER METASTATIC
     Dosage: DOSAGE IS UNCERTAIN.
     Route: 048
     Dates: start: 20110713, end: 20110805
  5. AVASTIN [Suspect]
     Indication: COLON CANCER METASTATIC
     Route: 041
     Dates: start: 20110826, end: 20120217

REACTIONS (2)
  - HYPOPROTEINAEMIA [None]
  - PROTEINURIA [None]
